FAERS Safety Report 10668114 (Version 2)
Quarter: 2015Q1

REPORT INFORMATION
  Report Type: Spontaneous
  Country: IT (occurrence: IT)
  Receive Date: 20141222
  Receipt Date: 20150302
  Transmission Date: 20150720
  Serious: Yes (Hospitalization, Other)
  Sender: FDA-Public Use
  Company Number: IT-PFIZER INC-2014346603

PATIENT
  Age: 67 Year
  Sex: Male

DRUGS (2)
  1. CYTARABINE. [Suspect]
     Active Substance: CYTARABINE
     Indication: MYELODYSPLASTIC SYNDROME
     Dosage: 195 MG, DAILY
     Route: 042
     Dates: start: 20141107, end: 20141113
  2. ZAVEDOS [Suspect]
     Active Substance: IDARUBICIN
     Indication: MYELODYSPLASTIC SYNDROME
     Dosage: 23.4 MG, DAILY
     Route: 042
     Dates: start: 20141107, end: 20141111

REACTIONS (3)
  - Bacteraemia [Unknown]
  - Pulmonary mass [Recovered/Resolved]
  - Febrile neutropenia [Recovered/Resolved]

NARRATIVE: CASE EVENT DATE: 20141116
